FAERS Safety Report 7244172-2 (Version None)
Quarter: 2011Q1

REPORT INFORMATION
  Report Type: 
  Country: None (occurrence: None)
  Receive Date: 20110125
  Receipt Date: 20100921
  Transmission Date: 20110831
  Serious: Yes (Hospitalization)
  Sender: FDA-Public Use
  Company Number: US-MYLANLABS-2010S1017413

PATIENT
  Age: 89 Year
  Sex: Male

DRUGS (8)
  1. COLCHICINE [Suspect]
     Indication: GOUT
     Route: 048
  2. FENTANYL-100 [Suspect]
     Indication: BACK PAIN
     Dosage: CHANGES PATCHES Q3D
     Route: 062
     Dates: start: 20100701
  3. KLOR-CON [Suspect]
     Indication: MINERAL SUPPLEMENTATION
     Route: 048
     Dates: end: 20100914
  4. WARFARIN [Concomitant]
  5. METOLAZONE [Suspect]
     Indication: DIURETIC THERAPY
     Route: 048
     Dates: end: 20100914
  6. ISOSORBIDE MONONITRATE [Suspect]
     Indication: CARDIAC DISORDER
     Route: 048
     Dates: end: 20100914
  7. CARVEDILOL [Suspect]
     Indication: BLOOD PRESSURE
     Route: 048
  8. DIGOXIN [Concomitant]

REACTIONS (2)
  - BLOOD PRESSURE ORTHOSTATIC DECREASED [None]
  - DIZZINESS [None]
